FAERS Safety Report 8596497-6 (Version None)
Quarter: 2012Q3

REPORT INFORMATION
  Report Type: 
  Country: None (occurrence: None)
  Receive Date: 20120815
  Receipt Date: 20120810
  Transmission Date: 20120928
  Serious: No
  Sender: FDA-Public Use
  Company Number: US-PFIZER INC-2012196002

PATIENT
  Age: 83 Year
  Sex: Male
  Weight: 65.76 kg

DRUGS (6)
  1. LEVOTHYROXINE [Concomitant]
     Indication: THYROID DISORDER
     Dosage: 1 MG,1X/DAY
  2. TOVIAZ [Suspect]
     Indication: HYPERTONIC BLADDER
     Dosage: 4 MG,1X/DAY
     Dates: start: 20120701, end: 20120801
  3. WARFARIN [Concomitant]
     Indication: HEART VALVE OPERATION
     Dosage: UNK, DAILY
  4. FUROSEMIDE [Concomitant]
     Indication: BLOOD PRESSURE ABNORMAL
     Dosage: 10 MG,1X/DAY
  5. ICAPS [Concomitant]
     Dosage: UNK
  6. ACETYLSALICYLIC ACID [Concomitant]
     Indication: HEART VALVE OPERATION
     Dosage: 81 MG,1X/DAY

REACTIONS (1)
  - DRUG INEFFECTIVE [None]
